FAERS Safety Report 19654496 (Version 13)
Quarter: 2023Q2

REPORT INFORMATION
  Report Type: Report from Study
  Country: US (occurrence: US)
  Receive Date: 20210803
  Receipt Date: 20230522
  Transmission Date: 20230722
  Serious: Yes (Hospitalization)
  Sender: FDA-Public Use
  Company Number: NVSC2021US166603

PATIENT
  Age: 51 Year
  Sex: Female
  Weight: 59.864 kg

DRUGS (10)
  1. TREPROSTINIL [Suspect]
     Active Substance: TREPROSTINIL
     Indication: Pulmonary arterial hypertension
     Dosage: 32 NG/ KG/ MIN, CONT (STRENGTH 2.5 MG/ML)
     Route: 058
     Dates: start: 20210702
  2. TREPROSTINIL [Suspect]
     Active Substance: TREPROSTINIL
     Dosage: 71 NG/KG/ MIN, CONT (STRENGTH: 5 MG/ML))
     Route: 058
     Dates: start: 20210702
  3. TREPROSTINIL [Suspect]
     Active Substance: TREPROSTINIL
     Dosage: 50 NG/ KG/ MIN, CONT (STRENGTH: 5 MG/ML)
     Route: 058
  4. TREPROSTINIL [Suspect]
     Active Substance: TREPROSTINIL
     Dosage: 50 NG/ KG/ MIN, CONT (STRENGTH: 5 MG/ML)
     Route: 058
  5. OPSUMIT [Concomitant]
     Active Substance: MACITENTAN
     Indication: Product used for unknown indication
     Dosage: UNK
     Route: 065
  6. REMODULIN [Concomitant]
     Active Substance: TREPROSTINIL
     Indication: Product used for unknown indication
     Dosage: UNK
     Route: 065
  7. WARFARIN [Concomitant]
     Active Substance: WARFARIN
     Indication: Product used for unknown indication
     Dosage: UNK
     Route: 065
  8. ADCIRCA [Concomitant]
     Active Substance: TADALAFIL
     Indication: Product used for unknown indication
     Dosage: UNK
     Route: 065
  9. SILDENAFIL CITRATE [Concomitant]
     Active Substance: SILDENAFIL CITRATE
     Indication: Product used for unknown indication
     Dosage: UNK
     Route: 065
  10. ELIQUIS [Concomitant]
     Active Substance: APIXABAN
     Indication: Product used for unknown indication
     Dosage: UNK
     Route: 065

REACTIONS (15)
  - Arrhythmia [Unknown]
  - Palpitations [Unknown]
  - Oxygen saturation decreased [Unknown]
  - Atrial fibrillation [Unknown]
  - Cardiac disorder [Unknown]
  - Respiratory failure [Unknown]
  - Malaise [Unknown]
  - Atrial flutter [Unknown]
  - Hypotension [Unknown]
  - Dermatitis contact [Unknown]
  - Illness [Unknown]
  - Dyspnoea [Unknown]
  - Injection site reaction [Unknown]
  - Device issue [Unknown]
  - Wrong technique in product usage process [Unknown]

NARRATIVE: CASE EVENT DATE: 20210720
